FAERS Safety Report 10430307 (Version 1)
Quarter: 2014Q3

REPORT INFORMATION
  Report Type: Spontaneous
  Country: US (occurrence: US)
  Receive Date: 20140904
  Receipt Date: 20140904
  Transmission Date: 20150326
  Serious: No
  Sender: FDA-Public Use
  Company Number: US-SA-2013SA104323

PATIENT
  Age: 30 Year
  Sex: Male

DRUGS (1)
  1. CARTICEL [Suspect]
     Active Substance: AUTOLOGOUS CULTURED CHONDROCYTES
     Indication: CARTILAGE INJURY
     Route: 065
     Dates: start: 20100519, end: 20100519

REACTIONS (1)
  - Treatment failure [Not Recovered/Not Resolved]
